FAERS Safety Report 7219815-X (Version None)
Quarter: 2011Q1

REPORT INFORMATION
  Report Type: 
  Country: None (occurrence: None)
  Receive Date: 20110111
  Receipt Date: 20110104
  Transmission Date: 20110831
  Serious: Yes (Other)
  Sender: FDA-Public Use
  Company Number: US-ROCHE-720438

PATIENT
  Sex: Female

DRUGS (3)
  1. FOSAMAX [Suspect]
     Indication: OSTEOPOROSIS
     Dosage: STRENGTH: 10 MG
     Route: 048
     Dates: start: 19980604, end: 20020801
  2. BONIVA [Suspect]
     Indication: OSTEOPOROSIS
     Route: 048
     Dates: start: 20060823, end: 20061030
  3. FOSAMAX [Suspect]
     Dosage: STRENGTH: 70 MG
     Route: 048
     Dates: start: 20020901, end: 20060725

REACTIONS (3)
  - PAIN [None]
  - ANXIETY [None]
  - OSTEONECROSIS OF JAW [None]
